FAERS Safety Report 26138149 (Version 1)
Quarter: 2025Q4

REPORT INFORMATION
  Report Type: Spontaneous
  Country: US (occurrence: US)
  Receive Date: 20251210
  Receipt Date: 20251210
  Transmission Date: 20260117
  Serious: No
  Sender: CIPLA
  Company Number: US-CIPLA LTD.-2024US15000

PATIENT

DRUGS (4)
  1. BUDESONIDE [Suspect]
     Active Substance: BUDESONIDE
     Indication: Bronchiectasis
     Dosage: UNK
     Route: 065
  2. ALBUTEROL SULFATE [Concomitant]
     Active Substance: ALBUTEROL SULFATE
     Indication: Bronchiectasis
     Dosage: UNK, BID (MORNING AND EVENING IN THE ULTRASONIC NEBULIZER) (APPROXIMATELY FROM 01-NOV)
     Route: 065
  3. ALBUTEROL SULFATE\IPRATROPIUM BROMIDE [Concomitant]
     Active Substance: ALBUTEROL SULFATE\IPRATROPIUM BROMIDE
     Indication: Bronchiectasis
     Dosage: UNK, (3 TO 4 MONTHS AGO)
     Route: 065
     Dates: start: 2024
  4. SYMBICORT [Concomitant]
     Active Substance: BUDESONIDE\FORMOTEROL FUMARATE DIHYDRATE
     Indication: Bronchiectasis
     Dosage: UNK UNK, BID (TWO PUFFS IN THE MORNING, TWO PUFFS IN THE EVENING) (STRENGTH: 40 ML)
     Route: 065
     Dates: start: 20241114, end: 20241207

REACTIONS (3)
  - Off label use [Unknown]
  - Product dose omission issue [Unknown]
  - Off label use of device [Unknown]

NARRATIVE: CASE EVENT DATE: 20241210
